FAERS Safety Report 17559631 (Version 1)
Quarter: 2020Q1

REPORT INFORMATION
  Report Type: Spontaneous
  Country: US (occurrence: US)
  Receive Date: 20200319
  Receipt Date: 20200319
  Transmission Date: 20200409
  Serious: No
  Sender: FDA-Public Use
  Company Number: US-APOTEX-2020AP007287

PATIENT
  Age: 59 Year
  Sex: Female

DRUGS (9)
  1. BUPROPION. [Suspect]
     Active Substance: BUPROPION
     Indication: STIFF PERSON SYNDROME
     Dosage: 200 MG, QD
     Route: 065
  2. DIAZEPAM. [Suspect]
     Active Substance: DIAZEPAM
     Indication: STIFF PERSON SYNDROME
     Dosage: 35 MG, QD
     Route: 065
  3. NALTREXONE [Suspect]
     Active Substance: NALTREXONE
     Indication: STIFF PERSON SYNDROME
     Dosage: 1.5 MG, IN THE EVENING
     Route: 048
  4. BACLOFEN. [Suspect]
     Active Substance: BACLOFEN
     Indication: STIFF PERSON SYNDROME
     Dosage: 30 MG, QD
     Route: 065
  5. NALTREXONE [Suspect]
     Active Substance: NALTREXONE
     Dosage: 4.5 MG, UNK
     Route: 048
  6. NALTREXONE [Suspect]
     Active Substance: NALTREXONE
     Dosage: 3 MG, UNK
     Route: 048
  7. GABAPENTIN. [Suspect]
     Active Substance: GABAPENTIN
     Indication: STIFF PERSON SYNDROME
     Dosage: 2100 MG, QD
     Route: 065
  8. SERTRALINE [Suspect]
     Active Substance: SERTRALINE HYDROCHLORIDE
     Indication: STIFF PERSON SYNDROME
     Dosage: UNK
     Route: 065
  9. IMMUNOGLOBULIN                     /07494701/ [Suspect]
     Active Substance: IMMUNE GLOBULIN NOS
     Indication: STIFF PERSON SYNDROME
     Dosage: UNK
     Route: 042

REACTIONS (3)
  - Off label use [Unknown]
  - Abnormal dreams [Unknown]
  - Therapeutic product effect incomplete [Unknown]
